FAERS Safety Report 25984769 (Version 1)
Quarter: 2025Q4

REPORT INFORMATION
  Report Type: Other
  Country: US (occurrence: US)
  Receive Date: 20251031
  Receipt Date: 20251031
  Transmission Date: 20260118
  Serious: No
  Sender: APOTEX
  Company Number: US-APOTEX-2025AP031448

PATIENT
  Age: 51 Year
  Sex: Female

DRUGS (1)
  1. LENALIDOMIDE [Suspect]
     Active Substance: LENALIDOMIDE
     Indication: Monoclonal gammopathy
     Dosage: 15 MILLIGRAM
     Route: 065
     Dates: start: 20250210

REACTIONS (1)
  - Human chorionic gonadotropin increased [Not Recovered/Not Resolved]

NARRATIVE: CASE EVENT DATE: 20250825
